FAERS Safety Report 4717284-2 (Version None)
Quarter: 2005Q3

REPORT INFORMATION
  Report Type: 
  Country: None (occurrence: None)
  Receive Date: 20050719
  Receipt Date: 20050316
  Transmission Date: 20060218
  Serious: Yes (Other)
  Sender: FDA-Public Use
  Company Number: PHEH2005US03215

PATIENT
  Age: 22 Year
  Sex: Female
  Weight: 76 kg

DRUGS (3)
  1. BENTYL [Concomitant]
     Dates: start: 20050301
  2. MIRALAX [Concomitant]
     Dates: start: 20050301
  3. ZELNORM [Suspect]
     Indication: IRRITABLE BOWEL SYNDROME
     Dosage: 6 MG, BID
     Route: 048
     Dates: start: 20050309

REACTIONS (6)
  - DRUG EXPOSURE DURING PREGNANCY [None]
  - FAECES DISCOLOURED [None]
  - HAEMORRHOIDS [None]
  - MICTURITION URGENCY [None]
  - NORMAL NEWBORN [None]
  - RECTAL HAEMORRHAGE [None]
